FAERS Safety Report 16927008 (Version 2)
Quarter: 2020Q1

REPORT INFORMATION
  Report Type: Spontaneous
  Country: CA (occurrence: CA)
  Receive Date: 20191016
  Receipt Date: 20200205
  Transmission Date: 20200409
  Serious: Yes (Other)
  Sender: FDA-Public Use
  Company Number: CA-PFIZER INC-2019442869

PATIENT
  Age: 60 Year
  Sex: Male

DRUGS (2)
  1. ATORVASTATIN CALCIUM. [Suspect]
     Active Substance: ATORVASTATIN CALCIUM
     Dosage: UNK
  2. ROSIGLITAZONE [Interacting]
     Active Substance: ROSIGLITAZONE
     Dosage: UNK

REACTIONS (3)
  - Immune-mediated myositis [Unknown]
  - Drug interaction [Unknown]
  - Myopathy [Unknown]
